FAERS Safety Report 8083725-9 (Version None)
Quarter: 2012Q1

REPORT INFORMATION
  Report Type: 
  Country: None (occurrence: None)
  Receive Date: 20120127
  Receipt Date: 20110123
  Transmission Date: 20120608
  Serious: No
  Sender: FDA-Public Use
  Company Number: US-ABBOTT-11P-163-0700102-00

PATIENT
  Age: 48 Year
  Sex: Male

DRUGS (5)
  1. AMBIEN [Concomitant]
     Indication: INSOMNIA
  2. UNKNOWN MEDICATION [Concomitant]
     Indication: NAUSEA
  3. PERCOCET [Concomitant]
     Indication: PAIN
     Dosage: 5/325 AS NEEDED
  4. HUMIRA [Suspect]
     Indication: CROHN'S DISEASE
     Dates: start: 20101001
  5. PRILOSEC [Concomitant]
     Indication: GASTROOESOPHAGEAL REFLUX DISEASE

REACTIONS (4)
  - THROAT IRRITATION [None]
  - NASAL CONGESTION [None]
  - FEELING ABNORMAL [None]
  - PAIN [None]
